FAERS Safety Report 11319158 (Version 2)
Quarter: 2015Q3

REPORT INFORMATION
  Report Type: Spontaneous
  Country: US (occurrence: US)
  Receive Date: 20150729
  Receipt Date: 20150825
  Transmission Date: 20151125
  Serious: No
  Sender: FDA-Public Use
  Company Number: US-ACTELION PHARMACEUTICALS US, INC.-A-US2015-116365

PATIENT
  Age: 69 Year
  Sex: Male

DRUGS (7)
  1. TYVASO [Concomitant]
     Active Substance: TREPROSTINIL
  2. RIOCIGUAT [Concomitant]
     Active Substance: RIOCIGUAT
  3. TREPROSTINIL DIOLAMIN [Suspect]
     Active Substance: TREPROSTINIL DIOLAMINE
     Indication: PULMONARY ARTERIAL HYPERTENSION
     Dosage: 2.5 MG, TID
     Route: 048
     Dates: start: 20150406
  4. ASPIRIN. [Concomitant]
     Active Substance: ASPIRIN
  5. OPSUMIT [Suspect]
     Active Substance: MACITENTAN
     Indication: PULMONARY ARTERIAL HYPERTENSION
     Dosage: 10 MG, QD
     Route: 048
  6. ADCIRCA [Concomitant]
     Active Substance: TADALAFIL
  7. COUMADIN [Concomitant]
     Active Substance: WARFARIN SODIUM

REACTIONS (10)
  - Oedema [Unknown]
  - Syncope [Unknown]
  - Dizziness [Unknown]
  - Faeces discoloured [Unknown]
  - Faeces soft [Unknown]
  - Dyspnoea exertional [Unknown]
  - Oedema peripheral [Unknown]
  - Asthenia [Unknown]
  - Hypotension [Unknown]
  - Diarrhoea [Unknown]
